FAERS Safety Report 6354609-9 (Version None)
Quarter: 2009Q3

REPORT INFORMATION
  Report Type: 
  Country: None (occurrence: None)
  Receive Date: 20090914
  Receipt Date: 20090908
  Transmission Date: 20100115
  Serious: Yes (Hospitalization)
  Sender: FDA-Public Use
  Company Number: US-JNJFOC-20090800053

PATIENT
  Sex: Female
  Weight: 48.54 kg

DRUGS (8)
  1. FENTANYL TRANSDERMAL SYSTEM [Suspect]
     Indication: INTERVERTEBRAL DISC DISORDER
     Route: 062
  2. DURAGESIC-100 [Suspect]
     Indication: INTERVERTEBRAL DISC DISORDER
     Route: 062
  3. FLEXERIL [Concomitant]
     Indication: MUSCLE SPASMS
     Route: 048
  4. LORTAB [Concomitant]
     Indication: FIBROMYALGIA
     Route: 048
  5. VALIUM [Concomitant]
     Indication: TREMOR
     Route: 048
  6. DILAUDID [Concomitant]
     Indication: BREAKTHROUGH PAIN
     Route: 048
  7. CYMBALTA [Concomitant]
     Indication: ANXIETY
     Route: 048
  8. NABUMETONE [Concomitant]
     Indication: OSTEOARTHRITIS
     Route: 048

REACTIONS (5)
  - ARTHRALGIA [None]
  - INTERVERTEBRAL DISC DISORDER [None]
  - NEUROPATHY PERIPHERAL [None]
  - SCIATICA [None]
  - WRONG TECHNIQUE IN DRUG USAGE PROCESS [None]
